FAERS Safety Report 21193370 (Version 2)
Quarter: 2022Q3

REPORT INFORMATION
  Report Type: Spontaneous
  Country: US (occurrence: US)
  Receive Date: 20220810
  Receipt Date: 20220831
  Transmission Date: 20221027
  Serious: Yes (Disabling)
  Sender: FDA-Public Use
  Company Number: US-AVET LIFESCIENCES LTD-2022-AVET-000141

PATIENT

DRUGS (3)
  1. TEMOZOLOMIDE [Suspect]
     Active Substance: TEMOZOLOMIDE
     Indication: Brain neoplasm
     Dosage: 255 MILLIGRAM
     Route: 048
     Dates: start: 202107, end: 202111
  2. BRAFTOVI [Suspect]
     Active Substance: ENCORAFENIB
     Indication: Brain neoplasm
     Dosage: 75 MILLIGRAM PER CAPSULE, 6 CAPSULE PER DAY
  3. MEKTOVI [Suspect]
     Active Substance: BINIMETINIB
     Indication: Brain neoplasm
     Dosage: 15 MILLIGRAM PER CAPSULE, 6 PER DAY

REACTIONS (4)
  - Pain [Recovered/Resolved]
  - Fatigue [Recovered/Resolved]
  - Nausea [Recovered/Resolved]
  - Decreased appetite [Recovered/Resolved]
